FAERS Safety Report 10347195 (Version 1)
Quarter: 2014Q3

REPORT INFORMATION
  Report Type: Spontaneous
  Country: US (occurrence: US)
  Receive Date: 20140729
  Receipt Date: 20140729
  Transmission Date: 20150326
  Serious: No
  Sender: FDA-Public Use
  Company Number: US-009507513-1407USA008563

PATIENT
  Sex: Female
  Weight: 103.4 kg

DRUGS (1)
  1. NUVARING [Suspect]
     Active Substance: ETHINYL ESTRADIOL\ETONOGESTREL
     Indication: CONTRACEPTION
     Dosage: AS DIRECTED
     Route: 067
     Dates: start: 200702

REACTIONS (31)
  - Gastrooesophageal reflux disease [Unknown]
  - Ankylosing spondylitis [Unknown]
  - Menopausal symptoms [Unknown]
  - Fatigue [Unknown]
  - Phlebitis [Unknown]
  - Hypertension [Not Recovered/Not Resolved]
  - Depression [Unknown]
  - Vulvovaginal mycotic infection [Unknown]
  - Anaemia [Unknown]
  - Deep vein thrombosis [Unknown]
  - Genital herpes [Unknown]
  - Pelvic haemorrhage [Unknown]
  - Dysmenorrhoea [Unknown]
  - Dysuria [Unknown]
  - Sleep apnoea syndrome [Unknown]
  - Hypothyroidism [Unknown]
  - Haemorrhoid operation [Unknown]
  - Hiatus hernia [Unknown]
  - Bacterial vaginosis [Unknown]
  - Sjogren^s syndrome [Unknown]
  - Anal fissure excision [Unknown]
  - Thrombophlebitis superficial [Unknown]
  - Pollakiuria [Unknown]
  - Urinary tract infection [Unknown]
  - Hormone therapy [Unknown]
  - Pain in extremity [Recovering/Resolving]
  - Back pain [Unknown]
  - Rheumatoid arthritis [Unknown]
  - Bacterial vaginosis [Unknown]
  - Micturition urgency [Unknown]
  - Vulvovaginal mycotic infection [Unknown]

NARRATIVE: CASE EVENT DATE: 2007
